FAERS Safety Report 23564789 (Version 1)
Quarter: 2024Q1

REPORT INFORMATION
  Report Type: Spontaneous
  Country: UY (occurrence: UY)
  Receive Date: 20240226
  Receipt Date: 20240226
  Transmission Date: 20240410
  Serious: No
  Sender: FDA-Public Use
  Company Number: UY-PFIZER INC-PV202300185459

PATIENT
  Age: 12 Year
  Sex: Male

DRUGS (1)
  1. GENOTROPIN [Suspect]
     Active Substance: SOMATROPIN
     Indication: Short stature
     Dosage: 1 TO 1.4 MG, 7 TIMES PER WEEK
     Dates: start: 20191230, end: 20231107

REACTIONS (3)
  - Expired device used [Unknown]
  - Device failure [Unknown]
  - Device information output issue [Unknown]

NARRATIVE: CASE EVENT DATE: 20230901
